FAERS Safety Report 5307726-6 (Version None)
Quarter: 2007Q2

REPORT INFORMATION
  Report Type: 
  Country: None (occurrence: None)
  Receive Date: 20070418
  Receipt Date: 20070403
  Transmission Date: 20071010
  Serious: Yes (Other)
  Sender: FDA-Public Use
  Company Number: SPV1-2007-01905

PATIENT
  Age: 43 Year
  Sex: Male
  Weight: 74.8 kg

DRUGS (1)
  1. CARBATROL [Suspect]
     Indication: CONVULSION
     Dosage: 300 MG DAILY
     Dates: start: 20040101, end: 20070220

REACTIONS (3)
  - CONVULSION [None]
  - MUSCLE TWITCHING [None]
  - NAUSEA [None]
